FAERS Safety Report 24254423 (Version 1)
Quarter: 2024Q3

REPORT INFORMATION
  Report Type: Spontaneous
  Country: US (occurrence: None)
  Receive Date: 20240826
  Receipt Date: 20240826
  Transmission Date: 20241016
  Serious: Yes (Other)
  Sender: Public
  Company Number: None

PATIENT
  Age: 61 Year
  Sex: Female
  Weight: 62.1 kg

DRUGS (2)
  1. OHTUVAYRE [Suspect]
     Active Substance: ENSIFENTRINE
     Dosage: 3 MG TWICE A DAY RESPIRATORY (INHALATION)?
     Route: 055
     Dates: start: 20240823, end: 20240826
  2. DALIRESP [Concomitant]
     Active Substance: ROFLUMILAST
     Dates: start: 20240722

REACTIONS (1)
  - Back pain [None]

NARRATIVE: CASE EVENT DATE: 20240826
